FAERS Safety Report 6773488-9 (Version None)
Quarter: 2010Q2

REPORT INFORMATION
  Report Type: 
  Country: None (occurrence: None)
  Receive Date: 20100616
  Receipt Date: 20100601
  Transmission Date: 20101027
  Serious: No
  Sender: FDA-Public Use
  Company Number: US-ABBOTT-10P-163-0649291-00

PATIENT
  Sex: Male
  Weight: 81.72 kg

DRUGS (6)
  1. TRILIPIX [Suspect]
     Indication: BLOOD TRIGLYCERIDES INCREASED
     Dates: start: 20100421, end: 20100525
  2. TRILIPIX [Suspect]
     Indication: BLOOD CHOLESTEROL INCREASED
     Dates: start: 20100525
  3. PRAVASTATIN [Concomitant]
     Indication: BLOOD CHOLESTEROL INCREASED
  4. TYLENOL [Concomitant]
     Indication: ARTHRITIS
  5. FLUTICASONE [Concomitant]
     Indication: HYPERSENSITIVITY
  6. LISINOPRIL [Concomitant]
     Indication: HYPERTENSION

REACTIONS (2)
  - MUSCLE SPASMS [None]
  - TENDONITIS [None]
